FAERS Safety Report 20825673 (Version 1)
Quarter: 2022Q2

REPORT INFORMATION
  Report Type: Spontaneous
  Country: US (occurrence: None)
  Receive Date: 20220512
  Receipt Date: 20220512
  Transmission Date: 20220721
  Serious: Yes (Other)
  Sender: FDA-Public Use
  Company Number: None

PATIENT
  Age: 70 Year
  Sex: Female
  Weight: 66.6 kg

DRUGS (1)
  1. FENTANYL [Suspect]
     Active Substance: FENTANYL
     Indication: Pain
     Dosage: OTHER QUANTITY : 10 PATCH(ES);?OTHER FREQUENCY : 72 HOURS;?
     Route: 061
     Dates: start: 20220401, end: 20220501

REACTIONS (4)
  - Pain [None]
  - Nausea [None]
  - Muscle spasms [None]
  - Suspected product quality issue [None]

NARRATIVE: CASE EVENT DATE: 20220401
